FAERS Safety Report 12137506 (Version 1)
Quarter: 2016Q1

REPORT INFORMATION
  Report Type: Spontaneous
  Country: TW (occurrence: TW)
  Receive Date: 20160302
  Receipt Date: 20160302
  Transmission Date: 20160526
  Serious: Yes (Hospitalization)
  Sender: FDA-Public Use
  Company Number: PHHY2016TW024935

PATIENT
  Age: 80 Year
  Sex: Male

DRUGS (1)
  1. CEFTRIAXONE. [Suspect]
     Active Substance: CEFTRIAXONE
     Indication: WOUND INFECTION
     Dosage: 1 G, QD
     Route: 065

REACTIONS (5)
  - Blood bilirubin increased [Recovering/Resolving]
  - Biliary dilatation [Unknown]
  - Cholelithiasis [Unknown]
  - Multiple organ dysfunction syndrome [Unknown]
  - Gallbladder disorder [Unknown]
